FAERS Safety Report 23745884 (Version 1)
Quarter: 2024Q2

REPORT INFORMATION
  Report Type: Spontaneous
  Country: US (occurrence: US)
  Receive Date: 20240416
  Receipt Date: 20240416
  Transmission Date: 20240716
  Serious: No
  Sender: FDA-Public Use
  Company Number: US-E2BLSMVVAL-SPO/USA/24/0005463

PATIENT
  Age: 90 Year
  Sex: Male

DRUGS (1)
  1. OMEPRAZOLE [Suspect]
     Active Substance: OMEPRAZOLE
     Indication: Product used for unknown indication
     Dosage: DELAYED RELEASE CAPSULES
     Route: 065

REACTIONS (13)
  - Abdominal discomfort [Unknown]
  - Decreased appetite [Unknown]
  - Nausea [Unknown]
  - Vomiting [Unknown]
  - Tremor [Unknown]
  - Drug ineffective [Unknown]
  - Food poisoning [Unknown]
  - Therapeutic response changed [Unknown]
  - Hypoglycaemia [Unknown]
  - Hypophagia [Unknown]
  - Product substitution issue [Unknown]
  - Gastroenteritis viral [Unknown]
  - Vomiting [Unknown]
